FAERS Safety Report 10995438 (Version 1)
Quarter: 2015Q2

REPORT INFORMATION
  Report Type: Report from Study
  Country: CA (occurrence: CA)
  Receive Date: 20150407
  Receipt Date: 20150407
  Transmission Date: 20150821
  Serious: Yes (Death, Other)
  Sender: FDA-Public Use
  Company Number: PHHY2015CA028632

PATIENT
  Age: 79 Year
  Sex: Male

DRUGS (3)
  1. CLOZARIL [Suspect]
     Active Substance: CLOZAPINE
     Dosage: 12.5 MG, QD
     Route: 065
     Dates: start: 201207
  2. CLOZARIL [Suspect]
     Active Substance: CLOZAPINE
     Indication: PARKINSON^S DISEASE PSYCHOSIS
     Dosage: 12.5 MG, QHS
     Route: 048
     Dates: start: 20071121
  3. CLOZARIL [Suspect]
     Active Substance: CLOZAPINE
     Dosage: UNK
     Route: 048
     Dates: start: 20071127

REACTIONS (6)
  - Cerebrovascular accident [Fatal]
  - Leukocytosis [Unknown]
  - Concomitant disease aggravated [Not Recovered/Not Resolved]
  - General physical health deterioration [Unknown]
  - Paranoia [Unknown]
  - White blood cell count decreased [Unknown]

NARRATIVE: CASE EVENT DATE: 20150306
